FAERS Safety Report 13089083 (Version 1)
Quarter: 2017Q1

REPORT INFORMATION
  Report Type: Spontaneous
  Country: US (occurrence: US)
  Receive Date: 20170105
  Receipt Date: 20170105
  Transmission Date: 20170428
  Serious: No
  Sender: FDA-Public Use
  Company Number: US-PERRIGO-16US016157

PATIENT
  Age: 65 Year
  Sex: Female
  Weight: 72.56 kg

DRUGS (5)
  1. CELEBREX [Concomitant]
     Active Substance: CELECOXIB
     Indication: ARTHRITIS
     Dosage: UNK
     Route: 065
     Dates: start: 201604
  2. GUAIFENESIN. [Suspect]
     Active Substance: GUAIFENESIN
     Indication: FATIGUE
  3. CORTICOSTEROIDS, PLAIN [Suspect]
     Active Substance: CORTICOSTEROID NOS
     Indication: BURSITIS
     Dosage: 1 INJECTION, PRN
     Route: 030
     Dates: start: 201604, end: 201604
  4. GUAIFENESIN. [Suspect]
     Active Substance: GUAIFENESIN
     Indication: FIBROMYALGIA
     Dosage: 600 MG, BID
     Route: 048
     Dates: start: 201603
  5. LOSARTAN + HIDROCLOROTIAZIDA /01625701/ [Concomitant]
     Active Substance: HYDROCHLOROTHIAZIDE\LOSARTAN POTASSIUM
     Indication: HYPERTENSION
     Dosage: UNK
     Route: 065

REACTIONS (4)
  - Fatigue [None]
  - Therapeutic response unexpected [Unknown]
  - Drug ineffective for unapproved indication [Unknown]
  - Incorrect drug administration duration [Unknown]

NARRATIVE: CASE EVENT DATE: 201603
